FAERS Safety Report 6035881-1 (Version None)
Quarter: 2009Q1

REPORT INFORMATION
  Report Type: 
  Country: None (occurrence: None)
  Receive Date: 20090113
  Receipt Date: 20090109
  Transmission Date: 20090719
  Serious: Yes (Hospitalization)
  Sender: FDA-Public Use
  Company Number: A0718141A

PATIENT
  Age: 57 Year
  Sex: Female
  Weight: 134.1 kg

DRUGS (11)
  1. AVANDIA [Suspect]
     Dosage: 8MG PER DAY
     Route: 048
     Dates: start: 20020326, end: 20070705
  2. CARISOPRODOL [Concomitant]
  3. METOLAZONE [Concomitant]
  4. ZOLPIDEM [Concomitant]
  5. ZOLOFT [Concomitant]
  6. PROMETHAZINE [Concomitant]
  7. PRILOSEC [Concomitant]
  8. GABAPENTIN [Concomitant]
  9. HYDROCODONE BITARTRATE [Concomitant]
  10. ATENOLOL [Concomitant]
     Dates: start: 20000101
  11. HYDROCHLOROTHIAZIDE [Concomitant]
     Dates: start: 20000101

REACTIONS (2)
  - CARDIAC FAILURE CONGESTIVE [None]
  - HEART INJURY [None]
